FAERS Safety Report 9057867 (Version 1)
Quarter: 2013Q1

REPORT INFORMATION
  Report Type: Report from Study
  Country: AU (occurrence: AU)
  Receive Date: 20130204
  Receipt Date: 20130204
  Transmission Date: 20140127
  Serious: Yes (Life-Threatening, Hospitalization, Other)
  Sender: FDA-Public Use
  Company Number: AU-ASTRAZENECA-2011SE77713

PATIENT
  Age: 35 Year
  Sex: Female

DRUGS (4)
  1. SEROQUEL XR [Suspect]
     Indication: PSYCHOTIC DISORDER
     Dosage: 100 MG, INITIATED PRE-PREGNANCY
     Route: 048
  2. METFORMIN [Suspect]
     Indication: POLYCYSTIC OVARIES
     Dosage: 2000 MG DAILY, INITIATED PRE-PREGNANCY AND STOPPED AT 16/40
     Route: 048
  3. MEGAFOL [Concomitant]
     Indication: PROPHYLAXIS OF NEURAL TUBE DEFECT
     Dosage: 5 MG DAILY, INITIATED SINCE 1 TRIMESTER AND STOPPED AT DELIVERY
     Route: 048
  4. ELEVIT [Concomitant]
     Indication: VITAMIN SUPPLEMENTATION
     Dosage: 1 TABLET DAILY,  INITIATED SINCE 1 TRIMESTER AND STOPPED AT DELIVERY
     Route: 048

REACTIONS (5)
  - Exposure during pregnancy [Recovered/Resolved]
  - Gestational diabetes [Recovered/Resolved]
  - Caesarean section [Recovered/Resolved]
  - Hypotension [Recovered/Resolved]
  - Pregnancy [None]
